FAERS Safety Report 4443622-4 (Version None)
Quarter: 2004Q3

REPORT INFORMATION
  Report Type: 
  Country: None (occurrence: None)
  Receive Date: 20040903
  Receipt Date: 20040903
  Transmission Date: 20050211
  Serious: Yes (Death)
  Sender: FDA-Public Use
  Company Number: None

PATIENT
  Age: 51 Year
  Sex: Female
  Weight: 120.6 kg

DRUGS (2)
  1. CELEBREX [Suspect]
     Dosage: 200 MG BID ORAL
     Route: 048
     Dates: start: 20040102, end: 20040802
  2. BEXTRA [Suspect]
     Dosage: 10 MG DAILY ORAL
     Route: 048
     Dates: start: 20040102, end: 20040802

REACTIONS (7)
  - ANASTOMOTIC ULCER [None]
  - CARDIO-RESPIRATORY ARREST [None]
  - DIVERTICULUM INTESTINAL [None]
  - GASTRIC HAEMORRHAGE [None]
  - GASTROINTESTINAL HAEMORRHAGE [None]
  - HYPOTENSION [None]
  - LARGE INTESTINAL ULCER [None]
